FAERS Safety Report 18570307 (Version 1)
Quarter: 2020Q4

REPORT INFORMATION
  Report Type: Spontaneous
  Country: US (occurrence: US)
  Receive Date: 20201202
  Receipt Date: 20201202
  Transmission Date: 20210114
  Serious: No
  Sender: FDA-Public Use
  Company Number: US-PFIZER INC-2020471175

PATIENT
  Age: 32 Year
  Sex: Female

DRUGS (2)
  1. BOSUTINIB [Suspect]
     Active Substance: BOSUTINIB
     Indication: CHRONIC MYELOID LEUKAEMIA
     Dosage: UNK
  2. TASIGNA [Suspect]
     Active Substance: NILOTINIB
     Dosage: UNK

REACTIONS (2)
  - Platelet count decreased [Unknown]
  - Neoplasm progression [Unknown]
